FAERS Safety Report 21638516 (Version 2)
Quarter: 2022Q4

REPORT INFORMATION
  Report Type: Spontaneous
  Country: US (occurrence: US)
  Receive Date: 20221124
  Receipt Date: 20221128
  Transmission Date: 20230113
  Serious: Yes (Hospitalization, Other)
  Sender: FDA-Public Use
  Company Number: US-JNJFOC-20220634183

PATIENT
  Age: 6 Decade
  Sex: Female
  Weight: 96.702 kg

DRUGS (11)
  1. XARELTO [Suspect]
     Active Substance: RIVAROXABAN
     Indication: Product used for unknown indication
     Route: 048
  2. XARELTO [Suspect]
     Active Substance: RIVAROXABAN
     Indication: Product used for unknown indication
     Route: 048
  3. ADEMPAS [Suspect]
     Active Substance: RIOCIGUAT
     Indication: Product used for unknown indication
  4. ADEMPAS [Suspect]
     Active Substance: RIOCIGUAT
     Indication: Product used for unknown indication
     Route: 065
  5. REMODULIN [Suspect]
     Active Substance: TREPROSTINIL
     Indication: Pulmonary arterial hypertension
     Dosage: 0.013 ?G/KG, UNK
     Route: 058
     Dates: start: 20220218
  6. REMODULIN [Suspect]
     Active Substance: TREPROSTINIL
     Indication: Pulmonary arterial hypertension
     Dosage: .021 ?G/KG, UNK
     Route: 058
  7. REMODULIN [Suspect]
     Active Substance: TREPROSTINIL
     Indication: Pulmonary arterial hypertension
     Dosage: .023 ?G/KG, UNK
     Route: 058
  8. REMODULIN [Suspect]
     Active Substance: TREPROSTINIL
     Indication: Pulmonary arterial hypertension
     Dosage: UNK
  9. SILDENAFIL CITRATE [Suspect]
     Active Substance: SILDENAFIL CITRATE
  10. UPTRAVI [Concomitant]
     Active Substance: SELEXIPAG
     Indication: Product used for unknown indication
  11. AMBRISENTAN [Concomitant]
     Active Substance: AMBRISENTAN
     Indication: Product used for unknown indication

REACTIONS (21)
  - Administration site pain [Recovering/Resolving]
  - Infusion site erythema [Unknown]
  - Fatigue [Unknown]
  - Hypersomnia [Unknown]
  - Negative thoughts [Recovering/Resolving]
  - Asthenia [Recovering/Resolving]
  - Gait inability [Recovering/Resolving]
  - Dyspnoea at rest [Not Recovered/Not Resolved]
  - Gastroenteritis viral [Unknown]
  - Hypotension [Unknown]
  - Administration site discomfort [Unknown]
  - Oxygen saturation decreased [Recovering/Resolving]
  - Localised oedema [Unknown]
  - Dizziness [Unknown]
  - Muscle spasms [Unknown]
  - Asthenia [Unknown]
  - Pyrexia [Unknown]
  - Vomiting [Recovered/Resolved]
  - Diarrhoea [Not Recovered/Not Resolved]
  - Administration site pruritus [Unknown]
  - Oedema peripheral [Unknown]

NARRATIVE: CASE EVENT DATE: 20220101
